FAERS Safety Report 10472556 (Version 2)
Quarter: 2014Q3

REPORT INFORMATION
  Report Type: Spontaneous
  Country: US (occurrence: US)
  Receive Date: 20140924
  Receipt Date: 20140924
  Transmission Date: 20150326
  Serious: Yes (Hospitalization, Other)
  Sender: FDA-Public Use
  Company Number: US-SHIRE-US201405601

PATIENT
  Age: 70 Year
  Sex: Male
  Weight: 83.9 kg

DRUGS (13)
  1. ARICEPT [Concomitant]
     Active Substance: DONEPEZIL HYDROCHLORIDE
     Indication: MEMORY IMPAIRMENT
     Dosage: UNK, UNKNOWN
     Route: 048
     Dates: start: 20140603
  2. VITAMIN B [Concomitant]
     Active Substance: VITAMIN B
     Indication: PRODUCT USED FOR UNKNOWN INDICATION
     Dosage: UNK, UNKNOWN
     Route: 065
  3. NORVASC [Concomitant]
     Active Substance: AMLODIPINE BESYLATE
     Indication: BLOOD PRESSURE INCREASED
     Dosage: 5 MG, 2X/DAY:BID
     Route: 048
     Dates: start: 20140603, end: 201407
  4. DIAZEPAM. [Concomitant]
     Active Substance: DIAZEPAM
     Indication: PRODUCT USED FOR UNKNOWN INDICATION
     Dosage: UNK
     Route: 065
  5. DILTIAZEM [Concomitant]
     Active Substance: DILTIAZEM
     Indication: BLOOD PRESSURE INCREASED
     Dosage: 180 MG, 2X/DAY:BID
     Route: 048
     Dates: start: 201405
  6. AMPHETAMINE SALTS [Suspect]
     Active Substance: AMPHETAMINE ASPARTATE\AMPHETAMINE SULFATE\DEXTROAMPHETAMINE SACCHARATE\DEXTROAMPHETAMINE SULFATE
     Indication: DISTURBANCE IN ATTENTION
     Dosage: 15 MG, 1X/DAY:QD
     Route: 048
     Dates: start: 201406
  7. LASIX [Concomitant]
     Active Substance: FUROSEMIDE
     Indication: OEDEMA
     Dosage: 20 MG, 1X/DAY:QD
     Route: 048
     Dates: start: 20140603
  8. LASIX [Concomitant]
     Active Substance: FUROSEMIDE
     Indication: BLOOD PRESSURE INCREASED
  9. DEXAMETHASONE. [Concomitant]
     Active Substance: DEXAMETHASONE
     Indication: PROPHYLAXIS AGAINST TRANSPLANT REJECTION
     Dosage: UNK, UNKNOWN
     Route: 047
     Dates: start: 1999
  10. DULERA [Concomitant]
     Active Substance: FORMOTEROL FUMARATE DIHYDRATE\MOMETASONE FUROATE
     Indication: CHRONIC OBSTRUCTIVE PULMONARY DISEASE
     Dosage: 2 DF, 2X/DAY:BID (2 PUFFS TWICE DAILY)
     Route: 055
     Dates: end: 20140815
  11. FLOMAX [Concomitant]
     Active Substance: TAMSULOSIN HYDROCHLORIDE
     Indication: PROSTATOMEGALY
     Dosage: 0.04 MG, 1X/DAY:QD (MORNING)
     Route: 048
     Dates: end: 20140710
  12. HYTRIN [Concomitant]
     Active Substance: TERAZOSIN HYDROCHLORIDE
     Indication: PRODUCT USED FOR UNKNOWN INDICATION
     Dosage: 1 MG, 1X/DAY:QD (EVERY NIGHT)
     Route: 065
     Dates: end: 20140905
  13. LASIX [Concomitant]
     Active Substance: FUROSEMIDE
     Indication: HYPERNATRAEMIA

REACTIONS (9)
  - Back pain [Unknown]
  - Dizziness [Recovered/Resolved]
  - Anxiety [Recovered/Resolved]
  - Off label use [Not Recovered/Not Resolved]
  - Therapeutic response changed [Not Recovered/Not Resolved]
  - Urticaria [Recovered/Resolved]
  - Pulmonary embolism [Recovered/Resolved]
  - Depression [Recovered/Resolved]
  - Abdominal pain upper [Unknown]

NARRATIVE: CASE EVENT DATE: 2014
